FAERS Safety Report 8178661-3 (Version None)
Quarter: 2012Q1

REPORT INFORMATION
  Report Type: 
  Country: None (occurrence: None)
  Receive Date: 20120301
  Receipt Date: 20120224
  Transmission Date: 20120608
  Serious: Yes (Hospitalization)
  Sender: FDA-Public Use
  Company Number: JP-VERTEX PHARMACEUTICALS INC.-AE-2012-002867

PATIENT
  Age: 53 Year
  Sex: Female

DRUGS (6)
  1. TELAVIC (TELAPREVIR) [Suspect]
     Indication: HEPATITIS C
     Route: 048
     Dates: start: 20120117, end: 20120123
  2. REBETOL [Concomitant]
     Route: 048
     Dates: start: 20120208
  3. LANSOPRAZOLE [Concomitant]
  4. URSO 250 [Concomitant]
  5. REBETOL [Concomitant]
     Indication: HEPATITIS C
     Route: 048
     Dates: start: 20120117, end: 20120207
  6. PEG-INTRON [Concomitant]
     Indication: HEPATITIS C
     Route: 058
     Dates: start: 20120117

REACTIONS (3)
  - RENAL DISORDER [None]
  - RASH [None]
  - HYPERURICAEMIA [None]
